FAERS Safety Report 15811510 (Version 2)
Quarter: 2019Q2

REPORT INFORMATION
  Report Type: Spontaneous
  Country: US (occurrence: US)
  Receive Date: 20190111
  Receipt Date: 20190418
  Transmission Date: 20190711
  Serious: No
  Sender: FDA-Public Use
  Company Number: US-PFIZER INC-2018528847

PATIENT
  Age: 61 Year
  Sex: Male

DRUGS (2)
  1. XELJANZ [Suspect]
     Active Substance: TOFACITINIB CITRATE
     Indication: ALOPECIA
     Dosage: 5 MG, 2X/DAY
     Route: 048
     Dates: start: 20181210
  2. XELJANZ [Suspect]
     Active Substance: TOFACITINIB CITRATE
     Indication: LICHEN PLANOPILARIS
     Dosage: 5 MG, UNK
     Dates: start: 20181215

REACTIONS (4)
  - Product use in unapproved indication [Unknown]
  - Rhinorrhoea [Unknown]
  - Upper respiratory tract infection [Recovered/Resolved with Sequelae]
  - Nasal congestion [Unknown]

NARRATIVE: CASE EVENT DATE: 20181215
